FAERS Safety Report 13133540 (Version 2)
Quarter: 2017Q3

REPORT INFORMATION
  Report Type: Spontaneous
  Country: SE (occurrence: SE)
  Receive Date: 20170120
  Receipt Date: 20170704
  Transmission Date: 20171127
  Serious: Yes (Other)
  Sender: FDA-Public Use
  Company Number: ALCN2017SE000661

PATIENT
  Sex: Female

DRUGS (1)
  1. MAXIDEX [Suspect]
     Active Substance: DEXAMETHASONE
     Indication: PRODUCT USED FOR UNKNOWN INDICATION
     Dosage: UNK
     Route: 047
     Dates: end: 20090601

REACTIONS (6)
  - Cortisol deficiency [Unknown]
  - Polymyalgia rheumatica [Unknown]
  - Concomitant disease aggravated [Unknown]
  - Adrenal insufficiency [Unknown]
  - Episcleritis [Unknown]
  - Malaise [Unknown]

NARRATIVE: CASE EVENT DATE: 2005
